FAERS Safety Report 19814990 (Version 1)
Quarter: 2021Q3

REPORT INFORMATION
  Report Type: Spontaneous
  Country: US (occurrence: US)
  Receive Date: 20210907
  Receipt Date: 20210907
  Transmission Date: 20211014
  Serious: No
  Sender: FDA-Public Use
  Company Number: None

PATIENT
  Sex: Female
  Weight: 77.11 kg

DRUGS (4)
  1. BUPROPION 300MG XL [Suspect]
     Active Substance: BUPROPION
     Indication: MAJOR DEPRESSION
     Route: 048
     Dates: start: 200909
  2. BUPROPION 300MG XL [Suspect]
     Active Substance: BUPROPION
     Indication: ANXIETY
     Route: 048
     Dates: start: 200909
  3. BUPROPION 300 XL (GENERIC) [Suspect]
     Active Substance: BUPROPION HYDROCHLORIDE
     Indication: MAJOR DEPRESSION
     Route: 048
     Dates: start: 20170428, end: 20170505
  4. BUPROPION 300 XL (GENERIC) [Suspect]
     Active Substance: BUPROPION HYDROCHLORIDE
     Indication: ANXIETY
     Route: 048
     Dates: start: 20170428, end: 20170505

REACTIONS (7)
  - Abdominal pain upper [None]
  - Feeling abnormal [None]
  - Insomnia [None]
  - Product substitution issue [None]
  - Irritability [None]
  - Treatment failure [None]
  - Anxiety [None]
